FAERS Safety Report 8274452-3 (Version None)
Quarter: 2012Q2

REPORT INFORMATION
  Report Type: 
  Country: None (occurrence: None)
  Receive Date: 20120411
  Receipt Date: 20120329
  Transmission Date: 20120825
  Serious: Yes (Hospitalization)
  Sender: FDA-Public Use
  Company Number: PHHO2012JP003248

PATIENT
  Sex: Male

DRUGS (11)
  1. PREDNISOLONE [Concomitant]
     Indication: CRYOPYRIN ASSOCIATED PERIODIC SYNDROME
     Dosage: 5 MG, UNK
     Route: 048
     Dates: start: 20090601, end: 20100929
  2. HIRUDOID [Concomitant]
     Indication: ECZEMA
     Dosage: UNK
     Dates: start: 20100109
  3. ACUATIM [Concomitant]
     Indication: ECZEMA
     Dosage: UNK
     Dates: start: 20100623
  4. NAPROXEN [Concomitant]
     Indication: POLYARTHRITIS
     Dosage: UNK
     Route: 048
     Dates: start: 20110310
  5. LOXONIN [Concomitant]
     Indication: CRYOPYRIN ASSOCIATED PERIODIC SYNDROME
     Dosage: UNK
     Route: 048
     Dates: start: 20100109
  6. ALEGYSAL [Concomitant]
     Indication: CONJUNCTIVITIS ALLERGIC
     Dosage: UNK
     Dates: start: 20110811
  7. ANAKINRA [Concomitant]
  8. FAMOTIDINE [Concomitant]
     Indication: PROPHYLAXIS AGAINST GASTROINTESTINAL ULCER
     Dosage: 20 MG, UNK
     Route: 048
     Dates: start: 20110310
  9. ILARIS [Suspect]
     Indication: CRYOPYRIN ASSOCIATED PERIODIC SYNDROME
     Dosage: 150 MG, UNK
     Route: 058
     Dates: end: 20120126
  10. AZUNOL [Concomitant]
     Indication: STOMATITIS
     Dosage: UNK
     Route: 048
     Dates: start: 20101201
  11. RINDERON-VG [Concomitant]
     Indication: ECZEMA
     Dosage: UNK
     Dates: start: 20090601

REACTIONS (7)
  - DIARRHOEA [None]
  - OTITIS EXTERNA [None]
  - TOOTH INJURY [None]
  - BRONCHITIS [None]
  - OROPHARYNGEAL PAIN [None]
  - APPENDICITIS [None]
  - NASOPHARYNGITIS [None]
